FAERS Safety Report 19894710 (Version 1)
Quarter: 2021Q3

REPORT INFORMATION
  Report Type: Spontaneous
  Country: TW (occurrence: TW)
  Receive Date: 20210929
  Receipt Date: 20210929
  Transmission Date: 20211014
  Serious: Yes (Hospitalization)
  Sender: FDA-Public Use
  Company Number: TW-LUPIN PHARMACEUTICALS INC.-2021-18359

PATIENT
  Age: 67 Year
  Sex: Male

DRUGS (2)
  1. METOCLOPRAMIDE. [Suspect]
     Active Substance: METOCLOPRAMIDE
     Indication: ILEUS PARALYTIC
  2. METOCLOPRAMIDE. [Suspect]
     Active Substance: METOCLOPRAMIDE
     Indication: POLYNEUROPATHY
     Dosage: UNK
     Route: 065

REACTIONS (1)
  - Therapy non-responder [Unknown]
